FAERS Safety Report 8477015-X (Version None)
Quarter: 2012Q2

REPORT INFORMATION
  Report Type: 
  Country: None (occurrence: None)
  Receive Date: 20120629
  Receipt Date: 20120622
  Transmission Date: 20120825
  Serious: No
  Sender: FDA-Public Use
  Company Number: US-BIOGENIDEC-2012BI022363

PATIENT
  Sex: Female

DRUGS (4)
  1. AVONEX [Suspect]
     Route: 030
     Dates: start: 20120614, end: 20120614
  2. AVONEX [Suspect]
     Route: 030
     Dates: start: 20120621, end: 20120621
  3. AVONEX [Suspect]
     Route: 030
     Dates: start: 20120607, end: 20120607
  4. AVONEX [Suspect]
     Indication: MULTIPLE SCLEROSIS
     Route: 030
     Dates: start: 20060907

REACTIONS (2)
  - MOBILITY DECREASED [None]
  - JOINT HYPEREXTENSION [None]
